FAERS Safety Report 21660785 (Version 2)
Quarter: 2022Q4

REPORT INFORMATION
  Report Type: Spontaneous
  Country: US (occurrence: US)
  Receive Date: 20221130
  Receipt Date: 20221213
  Transmission Date: 20230112
  Serious: Yes (Hospitalization)
  Sender: FDA-Public Use
  Company Number: US-SA-SAC20221129000144

PATIENT
  Age: 28 Year
  Sex: Female

DRUGS (1)
  1. CABLIVI [Suspect]
     Active Substance: CAPLACIZUMAB-YHDP
     Indication: Thrombotic microangiopathy
     Dosage: 11 MG, QD
     Route: 058
     Dates: start: 20221111

REACTIONS (4)
  - Platelet count decreased [Unknown]
  - Epistaxis [Unknown]
  - Product use in unapproved indication [Unknown]
  - Injection site pain [Unknown]

NARRATIVE: CASE EVENT DATE: 20221111
